FAERS Safety Report 9531742 (Version 1)
Quarter: 2013Q3

REPORT INFORMATION
  Report Type: Spontaneous
  Country: US (occurrence: US)
  Receive Date: 20130918
  Receipt Date: 20130918
  Transmission Date: 20140515
  Serious: No
  Sender: FDA-Public Use
  Company Number: US-PFIZER INC-2013266815

PATIENT
  Sex: 0

DRUGS (2)
  1. RELPAX [Suspect]
     Indication: MIGRAINE WITH AURA
     Dosage: UNK
  2. RELPAX [Suspect]
     Indication: MIGRAINE WITH AURA

REACTIONS (2)
  - Visual impairment [Unknown]
  - Coordination abnormal [Unknown]
